FAERS Safety Report 5931504-8 (Version None)
Quarter: 2008Q4

REPORT INFORMATION
  Report Type: 
  Country: None (occurrence: None)
  Receive Date: 20081027
  Receipt Date: 20081022
  Transmission Date: 20090506
  Serious: Yes (Death)
  Sender: FDA-Public Use
  Company Number: A0751785A

PATIENT
  Age: 64 Year
  Sex: Male
  Weight: 94.7 kg

DRUGS (3)
  1. HYCAMTIN [Suspect]
     Dosage: 4MG WEEKLY
     Route: 042
     Dates: start: 20080815, end: 20081003
  2. PROCRIT [Concomitant]
  3. ALOXI [Concomitant]

REACTIONS (1)
  - DEATH [None]
